FAERS Safety Report 5658894-8 (Version None)
Quarter: 2008Q1

REPORT INFORMATION
  Report Type: 
  Country: None (occurrence: None)
  Receive Date: 20080310
  Receipt Date: 20070622
  Transmission Date: 20080703
  Serious: No
  Sender: FDA-Public Use
  Company Number: US-BAYER-200711328BCC

PATIENT
  Age: 72 Year
  Sex: Female
  Weight: 70 kg

DRUGS (7)
  1. ALEVE [Suspect]
     Indication: OSTEITIS
     Dosage: TOTAL DAILY DOSE: 440 MG  UNIT DOSE: 220 MG
     Route: 048
     Dates: start: 20070416, end: 20070401
  2. TAGAMET [Concomitant]
  3. VITAMIN E [Concomitant]
  4. CALCIUM [Concomitant]
  5. NATURE MADE MULTIPLE VITAMIN [Concomitant]
  6. ASCORBIC ACID [Concomitant]
  7. BEE POLLEN [Concomitant]

REACTIONS (3)
  - ASTHENIA [None]
  - CHEST DISCOMFORT [None]
  - DYSPNOEA [None]
